FAERS Safety Report 20486709 (Version 1)
Quarter: 2022Q1

REPORT INFORMATION
  Report Type: Spontaneous
  Country: US (occurrence: US)
  Receive Date: 20220217
  Receipt Date: 20220217
  Transmission Date: 20220423
  Serious: Yes (Other)
  Sender: FDA-Public Use
  Company Number: US-LUNDBECK-DKLU3044367

PATIENT
  Age: 63 Year
  Sex: Female
  Weight: 60 kg

DRUGS (8)
  1. NORTHERA [Suspect]
     Active Substance: DROXIDOPA
     Indication: Orthostatic hypotension
     Dosage: TAKE THE LAST DOSE AT 4 HOURS BEFORE BEDTIME
     Route: 048
  2. GABAPENTIN [Suspect]
     Active Substance: GABAPENTIN
     Indication: Product used for unknown indication
     Route: 065
  3. CEPHALEXIN [Concomitant]
     Active Substance: CEPHALEXIN
     Indication: Product used for unknown indication
     Route: 065
  4. BOTOX [Concomitant]
     Active Substance: ONABOTULINUMTOXINA
     Indication: Product used for unknown indication
     Route: 065
  5. PEPPERMINT OIL [Concomitant]
     Active Substance: PEPPERMINT OIL
     Indication: Product used for unknown indication
     Route: 065
  6. TYLENOL [Concomitant]
     Active Substance: ACETAMINOPHEN
     Indication: Product used for unknown indication
     Route: 065
  7. MIRTAZAPINE [Concomitant]
     Active Substance: MIRTAZAPINE
     Indication: Product used for unknown indication
     Route: 065
  8. AJOVY [Concomitant]
     Active Substance: FREMANEZUMAB-VFRM
     Indication: Product used for unknown indication
     Route: 065

REACTIONS (2)
  - COVID-19 [Unknown]
  - Alopecia [Not Recovered/Not Resolved]

NARRATIVE: CASE EVENT DATE: 20211001
